FAERS Safety Report 12072898 (Version 2)
Quarter: 2016Q1

REPORT INFORMATION
  Report Type: Spontaneous
  Country: RU (occurrence: RU)
  Receive Date: 20160212
  Receipt Date: 20160223
  Transmission Date: 20160526
  Serious: Yes (Hospitalization, Other)
  Sender: FDA-Public Use
  Company Number: RU-ASTRAZENECA-2016SE13642

PATIENT
  Age: 84 Year
  Sex: Female

DRUGS (15)
  1. BRILINTA [Suspect]
     Active Substance: TICAGRELOR
     Indication: PERCUTANEOUS CORONARY INTERVENTION
     Route: 048
     Dates: start: 20150423
  2. BRILINTA [Suspect]
     Active Substance: TICAGRELOR
     Indication: ACUTE CORONARY SYNDROME
     Route: 048
     Dates: start: 20150423
  3. OMEZ [Concomitant]
     Active Substance: OMEPRAZOLE
  4. PANANGIN [Concomitant]
     Active Substance: MAGNESIUM ASPARTATE\POTASSIUM ASPARTATE
  5. VEROSPIRON [Concomitant]
     Active Substance: SPIRONOLACTONE
  6. DIUVER [Concomitant]
     Active Substance: TORSEMIDE
  7. CORDARONE [Concomitant]
     Active Substance: AMIODARONE HYDROCHLORIDE
     Dosage: EVERY DAY
     Route: 048
  8. CARDIOMAGNYL [Concomitant]
     Active Substance: ASPIRIN\MAGNESIUM HYDROXIDE
  9. TORVACARD [Concomitant]
     Active Substance: ATORVASTATIN CALCIUM
  10. EFFOX [Concomitant]
     Active Substance: ISOSORBIDE MONONITRATE
  11. VALOSERDIN [Concomitant]
     Active Substance: BROMISOVAL\ETHYL 2-BROMOISOVALERATE
  12. BRILINTA [Suspect]
     Active Substance: TICAGRELOR
     Indication: MYOCARDIAL INFARCTION
     Route: 048
     Dates: start: 20150423
  13. PRESTARIUM [Concomitant]
     Active Substance: PERINDOPRIL
  14. CORVALOL [Concomitant]
     Active Substance: BROMISOVAL\PHENOBARBITAL SODIUM
  15. ZYLLT [Concomitant]
     Active Substance: CLOPIDOGREL BISULFATE

REACTIONS (1)
  - Myocardial infarction [Recovered/Resolved]

NARRATIVE: CASE EVENT DATE: 20150806
